FAERS Safety Report 10171865 (Version 2)
Quarter: 2014Q2

REPORT INFORMATION
  Report Type: Spontaneous
  Country: US (occurrence: None)
  Receive Date: 20140512
  Receipt Date: 20140529
  Transmission Date: 20141212
  Serious: Yes (Death, Hospitalization)
  Sender: FDA-Public Use
  Company Number: UTC-046975

PATIENT
  Age: 35 Year
  Sex: Female
  Weight: 122.9 kg

DRUGS (2)
  1. REMODULIN [Suspect]
     Indication: COR PULMONALE CHRONIC
     Dosage: 25.56 UG/KG (0.01775 UG/KG, 1IN 1 MIN) SUBCUTANEOUS
     Route: 058
     Dates: start: 2012
  2. REMODULIN [Suspect]
     Indication: PULMONARY HYPERTENSION
     Dosage: 25.56 UG/KG (0.01775 UG/KG, 1IN 1 MIN) SUBCUTANEOUS
     Route: 058
     Dates: start: 2012

REACTIONS (3)
  - Brain injury [None]
  - Cardiac arrest [None]
  - Drug dose omission [None]
